FAERS Safety Report 9143794 (Version 1)
Quarter: 2013Q1

REPORT INFORMATION
  Report Type: Spontaneous
  Country: US (occurrence: US)
  Receive Date: 20130306
  Receipt Date: 20130306
  Transmission Date: 20140127
  Serious: No
  Sender: FDA-Public Use
  Company Number: US-B.I. PHARMACEUTICALS,INC./RIDGEFIELD-2013-BI-05521BP

PATIENT
  Age: 84 Year
  Sex: Female
  Weight: 73 kg

DRUGS (1)
  1. PRADAXA [Suspect]
     Indication: ATRIAL FIBRILLATION
     Dosage: 300 MG
     Route: 048
     Dates: start: 201210

REACTIONS (4)
  - Ocular hyperaemia [Not Recovered/Not Resolved]
  - Ocular hyperaemia [Recovered/Resolved]
  - Skin discolouration [Recovered/Resolved]
  - Skin discolouration [Recovered/Resolved]
